FAERS Safety Report 10057864 (Version 1)
Quarter: 2014Q1

REPORT INFORMATION
  Report Type: Spontaneous
  Country: US (occurrence: None)
  Receive Date: 20140327
  Receipt Date: 20140327
  Transmission Date: 20141002
  Serious: Yes (Death)
  Sender: FDA-Public Use
  Company Number: 003-168

PATIENT
  Age: 37 Year
  Sex: Male

DRUGS (1)
  1. CROFAB ( BTG INTERNATIONAL, INC) [Suspect]
     Indication: SNAKE BITE
     Dosage: 12 VIALS TOTAL

REACTIONS (19)
  - Loss of consciousness [None]
  - Cyanosis [None]
  - Vomiting [None]
  - Metabolic acidosis [None]
  - Respiratory acidosis [None]
  - Tremor [None]
  - Local swelling [None]
  - Extremity necrosis [None]
  - Aspartate aminotransferase increased [None]
  - Alanine aminotransferase increased [None]
  - White blood cell count increased [None]
  - Fibrin D dimer increased [None]
  - Pupil fixed [None]
  - Mydriasis [None]
  - Ventricular tachycardia [None]
  - Prothrombin time prolonged [None]
  - Activated partial thromboplastin time prolonged [None]
  - Haemoglobin increased [None]
  - Haematocrit increased [None]
